FAERS Safety Report 8202797-1 (Version None)
Quarter: 2012Q1

REPORT INFORMATION
  Report Type: 
  Country: None (occurrence: None)
  Receive Date: 20120312
  Receipt Date: 20120312
  Transmission Date: 20120608
  Serious: Yes (Hospitalization)
  Sender: FDA-Public Use
  Company Number: None

PATIENT
  Age: 76 Year
  Sex: Male
  Weight: 99.7 kg

DRUGS (13)
  1. DIGOXIN [Concomitant]
  2. REGULAR INSULIN [Concomitant]
     Route: 058
  3. GLUCOSAMINE [Concomitant]
  4. ACCUPRIL [Concomitant]
     Route: 048
  5. COREG [Concomitant]
     Route: 048
  6. ASPIRIN [Concomitant]
     Dosage: 81 MG
     Route: 048
  7. REGULAR INSULIN [Concomitant]
     Route: 058
  8. NOVOLIN N [Concomitant]
     Route: 058
  9. NOVOLIN N [Concomitant]
     Route: 058
  10. XANAX [Concomitant]
     Route: 048
  11. LOVASTATIN [Concomitant]
     Route: 048
  12. PRADAXA [Suspect]
     Indication: ATRIAL FIBRILLATION
     Dosage: 150 MG
     Route: 048
  13. NEXIUM [Concomitant]
     Route: 048

REACTIONS (6)
  - HEAD INJURY [None]
  - SUBDURAL HAEMATOMA [None]
  - BRAIN MIDLINE SHIFT [None]
  - FALL [None]
  - CONFUSIONAL STATE [None]
  - TRAUMATIC HAEMATOMA [None]
